FAERS Safety Report 7660015-7 (Version None)
Quarter: 2011Q3

REPORT INFORMATION
  Report Type: 
  Country: None (occurrence: None)
  Receive Date: 20110805
  Receipt Date: 20110725
  Transmission Date: 20111222
  Serious: No
  Sender: FDA-Public Use
  Company Number: US-B.I. PHARMACEUTICALS,INC./RIDGEFIELD-2011-BP-15078BP

PATIENT
  Sex: Male

DRUGS (4)
  1. NIASPAN [Concomitant]
     Dosage: 500 MG
  2. AGGRENOX [Suspect]
     Indication: TRANSIENT ISCHAEMIC ATTACK
     Dates: start: 20070101
  3. ASPIRIN [Concomitant]
  4. LIPITOR [Concomitant]
     Dosage: 10 MG

REACTIONS (4)
  - URINE ANALYSIS ABNORMAL [None]
  - HIGH DENSITY LIPOPROTEIN DECREASED [None]
  - CHROMATURIA [None]
  - LIPIDS ABNORMAL [None]
